FAERS Safety Report 16168777 (Version 3)
Quarter: 2020Q1

REPORT INFORMATION
  Report Type: Report from Study
  Country: US (occurrence: US)
  Receive Date: 20190408
  Receipt Date: 20200221
  Transmission Date: 20200409
  Serious: No
  Sender: FDA-Public Use
  Company Number: US-MYLANLABS-2019M1027308

PATIENT
  Age: 65 Year
  Sex: Female
  Weight: 73 kg

DRUGS (3)
  1. MYRBETRIQ [Concomitant]
     Active Substance: MIRABEGRON
     Indication: URINARY INCONTINENCE
     Dosage: UNK, QOD
  2. TOVIAZ [Concomitant]
     Active Substance: FESOTERODINE FUMARATE
     Indication: URINARY INCONTINENCE
     Dosage: UNK, QD
  3. GLATIRAMER ACETATE INJECTION [Suspect]
     Active Substance: GLATIRAMER ACETATE
     Indication: MULTIPLE SCLEROSIS
     Dosage: 40 MILLIGRAM, 3XW
     Route: 058
     Dates: start: 20190304

REACTIONS (3)
  - Inability to afford medication [Unknown]
  - Drug administered in wrong device [Recovering/Resolving]
  - Product dose omission [Unknown]

NARRATIVE: CASE EVENT DATE: 20190304
